FAERS Safety Report 8337999 (Version 4)
Quarter: 2013Q2

REPORT INFORMATION
  Report Type: Spontaneous
  Country: US (occurrence: US)
  Receive Date: 20120116
  Receipt Date: 20130510
  Transmission Date: 20140414
  Serious: Yes (Hospitalization, Other)
  Sender: FDA-Public Use
  Company Number: US-BAYER-2012-003038

PATIENT
  Age: 31 Year
  Sex: Female
  Weight: 79.37 kg

DRUGS (7)
  1. YAZ [Suspect]
     Dosage: UNK
     Dates: start: 2006, end: 2009
  2. OMEPRAZOLE [Concomitant]
     Dosage: 20 MG, UNK
     Route: 048
  3. VENLAFAXINE HYDROCHLORIDE [Concomitant]
     Dosage: 37.5 MG, UNK
     Route: 048
  4. SEROQUEL [Concomitant]
     Dosage: 100 MG, UNK
     Route: 048
  5. EFFEXOR [Concomitant]
  6. XANAX [Concomitant]
     Indication: DEPRESSION
  7. BUSPAR [Concomitant]
     Indication: ANXIETY

REACTIONS (8)
  - Vena cava thrombosis [None]
  - Pain [None]
  - Venous thrombosis [None]
  - Pulmonary embolism [None]
  - Abortion induced [None]
  - Pulmonary embolism [None]
  - Pulmonary infarction [None]
  - Abortion induced [None]
